FAERS Safety Report 4279131-5 (Version None)
Quarter: 2004Q1

REPORT INFORMATION
  Report Type: 
  Country: None (occurrence: None)
  Receive Date: 20040122
  Receipt Date: 20040116
  Transmission Date: 20041129
  Serious: Yes (Disabling)
  Sender: FDA-Public Use
  Company Number: 2004-01-0970

PATIENT
  Sex: Female

DRUGS (2)
  1. PEG-INTRON [Suspect]
     Dosage: SUBCUTANEOUS
     Route: 058
     Dates: start: 20020101, end: 20021101
  2. REBETOL [Suspect]
     Dosage: ORAL
     Route: 048
     Dates: start: 20020101, end: 20021101

REACTIONS (1)
  - CARPAL TUNNEL SYNDROME [None]
